FAERS Safety Report 6669452-0 (Version None)
Quarter: 2010Q2

REPORT INFORMATION
  Report Type: 
  Country: None (occurrence: None)
  Receive Date: 20100406
  Receipt Date: 20100325
  Transmission Date: 20101027
  Serious: Yes (Other)
  Sender: FDA-Public Use
  Company Number: PHEH2008US08700

PATIENT
  Sex: Female
  Weight: 60.771 kg

DRUGS (25)
  1. ZOMETA [Suspect]
     Dosage: UNK
     Dates: start: 20020401, end: 20060301
  2. AREDIA [Suspect]
     Dosage: UNK
     Dates: start: 20001201, end: 20020201
  3. CELESTONE [Concomitant]
     Dosage: 2 ML, UNK
     Dates: start: 20000912
  4. XYLOCAINE [Concomitant]
     Dosage: 1 %, UNK
     Dates: start: 20000912
  5. RELAFEN [Concomitant]
     Dosage: UNK
  6. PERCOCET [Concomitant]
     Dosage: UNK
     Route: 048
  7. FEMARA [Concomitant]
     Dosage: UNK
     Dates: start: 20031201
  8. DRUG THERAPY NOS [Concomitant]
     Dosage: UNK
     Dates: start: 20031201
  9. FASLODEX [Concomitant]
  10. TAMOXIFEN CITRATE [Concomitant]
  11. ATENOLOL [Concomitant]
     Dosage: 100 MG, QD
     Route: 048
  12. LIPITOR [Concomitant]
     Dosage: 10 MG, QD
     Route: 048
  13. AMOXICILLIN [Concomitant]
     Dosage: 500 MG, QD
     Route: 048
  14. OXYCONTIN [Concomitant]
     Dosage: UNK MG, PRN
     Route: 048
  15. XELODA [Concomitant]
     Dosage: UNK
     Dates: start: 20070322
  16. AVASTIN [Concomitant]
     Dosage: UNK
     Dates: start: 20070322
  17. LACTULOSE [Concomitant]
  18. ENALAPRIL MALEATE [Concomitant]
     Dosage: UNK
     Route: 048
  19. VASOTEC [Concomitant]
     Dosage: 5 MG, Q12H
  20. DURAGESIC-100 [Concomitant]
     Dosage: 25 MCG, PRN
     Route: 062
  21. FLAGYL [Concomitant]
  22. METRONIDAZOLE [Concomitant]
  23. PROTONIX [Concomitant]
  24. NEUPOGEN [Concomitant]
  25. FOSAMAX [Concomitant]

REACTIONS (42)
  - ANHEDONIA [None]
  - ANXIETY [None]
  - ARTHRALGIA [None]
  - BACK PAIN [None]
  - COLITIS ISCHAEMIC [None]
  - COLONIC POLYP [None]
  - COMPRESSION FRACTURE [None]
  - CONSTIPATION [None]
  - DECREASED APPETITE [None]
  - DIARRHOEA [None]
  - FALL [None]
  - GENERAL PHYSICAL HEALTH DETERIORATION [None]
  - GINGIVAL EROSION [None]
  - HAEMORRHOIDS [None]
  - HYPOAESTHESIA [None]
  - INFECTION [None]
  - INTERVERTEBRAL DISC PROTRUSION [None]
  - IRRITABLE BOWEL SYNDROME [None]
  - LEUKOPENIA [None]
  - MALIGNANT NEOPLASM PROGRESSION [None]
  - METASTASES TO BONE [None]
  - METASTASES TO SPINE [None]
  - MOBILITY DECREASED [None]
  - NEUROPATHY PERIPHERAL [None]
  - OPEN WOUND [None]
  - ORAL CAVITY FISTULA [None]
  - ORAL INFECTION [None]
  - OSTEOARTHRITIS [None]
  - OSTEOMYELITIS ACUTE [None]
  - OSTEONECROSIS [None]
  - PAIN [None]
  - PAIN IN EXTREMITY [None]
  - PAIN IN JAW [None]
  - POLYPECTOMY [None]
  - PURULENT DISCHARGE [None]
  - RADICULOPATHY [None]
  - RECTAL HAEMORRHAGE [None]
  - SEQUESTRECTOMY [None]
  - SPINAL COLUMN STENOSIS [None]
  - SPINAL OSTEOARTHRITIS [None]
  - TOOTH EXTRACTION [None]
  - WEIGHT DECREASED [None]
